FAERS Safety Report 21639681 (Version 2)
Quarter: 2022Q4

REPORT INFORMATION
  Report Type: Spontaneous
  Country: CH (occurrence: CH)
  Receive Date: 20221124
  Receipt Date: 20221128
  Transmission Date: 20230113
  Serious: Yes (Other)
  Sender: FDA-Public Use
  Company Number: CH-MLMSERVICE-20221114-3917676-1

PATIENT
  Age: 84 Year
  Sex: Male

DRUGS (4)
  1. LORAZEPAM [Suspect]
     Active Substance: LORAZEPAM
     Indication: Anticipatory anxiety
     Dosage: UNK
     Dates: start: 2021, end: 2021
  2. MORPHINE SULFATE [Concomitant]
     Active Substance: MORPHINE SULFATE
     Dosage: UNK
  3. OXYGEN [Concomitant]
     Active Substance: OXYGEN
     Indication: COVID-19
     Dosage: UNK
     Route: 045
     Dates: start: 2020
  4. OXYGEN [Concomitant]
     Active Substance: OXYGEN
     Indication: Acute respiratory distress syndrome
     Dosage: 3 L; 1 MIN
     Route: 045

REACTIONS (3)
  - Delirium [Recovering/Resolving]
  - Cognitive disorder [Recovering/Resolving]
  - Persecutory delusion [Recovering/Resolving]

NARRATIVE: CASE EVENT DATE: 20210101
